FAERS Safety Report 9414711 (Version 2)
Quarter: 2013Q3

REPORT INFORMATION
  Report Type: Spontaneous
  Country: IT (occurrence: IT)
  Receive Date: 20130723
  Receipt Date: 20130729
  Transmission Date: 20140515
  Serious: Yes (Hospitalization)
  Sender: FDA-Public Use
  Company Number: IT-SANOFI-AVENTIS-2013SA073537

PATIENT
  Age: 91 Year
  Sex: Male

DRUGS (3)
  1. RAMIPRIL [Suspect]
     Indication: HYPERTENSION
     Route: 048
  2. LASIX [Suspect]
     Indication: HYPERTENSION
     Route: 048
  3. ALDACTONE [Suspect]
     Indication: HYPERTENSION
     Route: 048

REACTIONS (2)
  - Renal failure acute [Recovered/Resolved]
  - Drug administration error [Unknown]
